FAERS Safety Report 5304245-8 (Version None)
Quarter: 2007Q2

REPORT INFORMATION
  Report Type: 
  Country: None (occurrence: None)
  Receive Date: 20070423
  Receipt Date: 20070410
  Transmission Date: 20071010
  Serious: Yes (Other)
  Sender: FDA-Public Use
  Company Number: PHEH2007US04867

PATIENT
  Age: 75 Year
  Sex: Female

DRUGS (1)
  1. ZELNORM [Suspect]
     Route: 048

REACTIONS (3)
  - DYSPHAGIA [None]
  - GAIT DISTURBANCE [None]
  - SPEECH DISORDER [None]
